FAERS Safety Report 4326929-0 (Version None)
Quarter: 2004Q1

REPORT INFORMATION
  Report Type: 
  Country: None (occurrence: None)
  Receive Date: 20040330
  Receipt Date: 20040319
  Transmission Date: 20041129
  Serious: Yes (Life-Threatening)
  Sender: FDA-Public Use
  Company Number: DE-ROCHE-362231

PATIENT
  Age: 51 Year

DRUGS (6)
  1. CYMEVEN IV [Suspect]
     Route: 042
     Dates: start: 20020409, end: 20020419
  2. CYMEVEN IV [Suspect]
     Route: 042
     Dates: start: 20020313, end: 20020324
  3. CYMEVEN ORAL [Suspect]
     Route: 048
     Dates: start: 20020327, end: 20020403
  4. MABCAMPATH [Suspect]
     Route: 042
     Dates: start: 20020403, end: 20020419
  5. MABCAMPATH [Suspect]
     Route: 042
     Dates: start: 20020322, end: 20020327
  6. MABCAMPATH [Suspect]
     Route: 042
     Dates: start: 20020213, end: 20020313

REACTIONS (2)
  - BONE MARROW DEPRESSION [None]
  - HAEMOLYSIS [None]
